FAERS Safety Report 4324565-3 (Version None)
Quarter: 2004Q1

REPORT INFORMATION
  Report Type: 
  Country: None (occurrence: None)
  Receive Date: 20040325
  Receipt Date: 20040325
  Transmission Date: 20041129
  Serious: Yes (Life-Threatening, Hospitalization)
  Sender: FDA-Public Use
  Company Number: None

PATIENT
  Age: 60 Year
  Sex: Male
  Weight: 107.9561 kg

DRUGS (2)
  1. CHLORPROMAZINE [Suspect]
     Indication: BIPOLAR I DISORDER
     Dosage: 150 ONCE DAILY
  2. CHLORPROMAZINE [Suspect]
     Indication: SCHIZOPHRENIA
     Dosage: 150 ONCE DAILY

REACTIONS (12)
  - ACCIDENTAL OVERDOSE [None]
  - ARRHYTHMIA [None]
  - BIPOLAR I DISORDER [None]
  - CORONARY ARTERY OCCLUSION [None]
  - DIZZINESS [None]
  - EYE INJURY [None]
  - HALLUCINATION [None]
  - HEART RATE INCREASED [None]
  - INSOMNIA [None]
  - SCHIZOPHRENIA [None]
  - SYNCOPE [None]
  - TINNITUS [None]
